FAERS Safety Report 13640614 (Version 3)
Quarter: 2017Q3

REPORT INFORMATION
  Report Type: Spontaneous
  Country: JP (occurrence: JP)
  Receive Date: 20170611
  Receipt Date: 20170713
  Transmission Date: 20171127
  Serious: Yes (Hospitalization)
  Sender: FDA-Public Use
  Company Number: PHHY2016JP175067

PATIENT
  Age: 39 Year
  Sex: Female

DRUGS (2)
  1. IMUSERA [Suspect]
     Active Substance: FINGOLIMOD HYDROCHLORIDE
     Indication: MULTIPLE SCLEROSIS
     Dosage: 0.5 MG, QOD
     Route: 048
     Dates: start: 20150416
  2. PREDNISOLONE. [Suspect]
     Active Substance: PREDNISOLONE
     Indication: MULTIPLE SCLEROSIS
     Dosage: 10 MG, QD
     Route: 048

REACTIONS (2)
  - Memory impairment [Not Recovered/Not Resolved]
  - Cerebral infarction [Recovered/Resolved]

NARRATIVE: CASE EVENT DATE: 201611
